FAERS Safety Report 4554221-8 (Version None)
Quarter: 2004Q4

REPORT INFORMATION
  Report Type: 
  Country: None (occurrence: None)
  Receive Date: 20041227
  Receipt Date: 20041119
  Transmission Date: 20050328
  Serious: Yes (Hospitalization)
  Sender: FDA-Public Use
  Company Number: 04P-163-0281138-00

PATIENT
  Age: 59 Year
  Sex: Male
  Weight: 109.1 kg

DRUGS (14)
  1. HUMIRA [Suspect]
     Indication: RHEUMATOID ARTHRITIS
     Dosage: 40 MG, 1 IN 2 WK, SUBCUTANEOUS
     Route: 058
     Dates: start: 20040928
  2. SILDENAFIL CITRATE [Concomitant]
  3. CLOPIDOGREL BISULFATE [Concomitant]
  4. PROPACET 100 [Concomitant]
  5. MELOXICAM [Concomitant]
  6. FUROSEMIDE [Concomitant]
  7. FLOMAX [Concomitant]
  8. ZOLPIDEM TARTRATE [Concomitant]
  9. LISINOPRIL [Concomitant]
  10. ORLISTAT [Concomitant]
  11. CYCLOBENZAPRINE HYDROCHLORIDE [Concomitant]
  12. FOLIC ACID [Concomitant]
  13. ACETYLSALICYLIC ACID SRT [Concomitant]
  14. ATORVASTATIN [Concomitant]

REACTIONS (1)
  - TACHYCARDIA [None]
